FAERS Safety Report 11046958 (Version 1)
Quarter: 2015Q2

REPORT INFORMATION
  Report Type: Spontaneous
  Country: GB (occurrence: GB)
  Receive Date: 20150420
  Receipt Date: 20150420
  Transmission Date: 20150821
  Serious: Yes (Disabling, Other)
  Sender: FDA-Public Use
  Company Number: GB-TEVA-555029ACC

PATIENT
  Age: 59 Year
  Sex: Female
  Weight: 98 kg

DRUGS (4)
  1. PROGUANIL [Suspect]
     Active Substance: PROGUANIL
     Indication: MALARIA PROPHYLAXIS
     Dosage: 250/100 PD ONCE DAILY
     Route: 048
     Dates: start: 20150217, end: 20150218
  2. XARELTO [Interacting]
     Active Substance: RIVAROXABAN
  3. ATOVAQUONE. [Interacting]
     Active Substance: ATOVAQUONE
     Indication: MALARIA PROPHYLAXIS
     Dosage: 250/100 PD ONCE DAILY
     Route: 048
     Dates: start: 20150217, end: 20150218
  4. BISOPROLOL [Interacting]
     Active Substance: BISOPROLOL

REACTIONS (6)
  - Rales [Recovered/Resolved]
  - Chest discomfort [Recovered/Resolved]
  - Dyspnoea [Recovered/Resolved]
  - Heart rate increased [Recovered/Resolved]
  - Hypersensitivity [Recovered/Resolved]
  - Drug interaction [Unknown]

NARRATIVE: CASE EVENT DATE: 20150218
